FAERS Safety Report 8032089-5 (Version None)
Quarter: 2012Q1

REPORT INFORMATION
  Report Type: 
  Country: None (occurrence: None)
  Receive Date: 20120109
  Receipt Date: 20111230
  Transmission Date: 20120608
  Serious: Yes (Hospitalization)
  Sender: FDA-Public Use
  Company Number: BR-ASTRAZENECA-2012SE00019

PATIENT
  Age: 63 Year
  Sex: Male

DRUGS (4)
  1. NEXIUM [Suspect]
     Route: 048
  2. ATACAND [Suspect]
     Route: 048
  3. ASPIRIN [Concomitant]
     Route: 065
  4. ATENOLOL [Concomitant]
     Indication: HYPERTENSION

REACTIONS (1)
  - ARTERIAL OCCLUSIVE DISEASE [None]
